FAERS Safety Report 8478027-2 (Version None)
Quarter: 2012Q2

REPORT INFORMATION
  Report Type: 
  Country: None (occurrence: None)
  Receive Date: 20120629
  Receipt Date: 20120626
  Transmission Date: 20120825
  Serious: Yes (Death)
  Sender: FDA-Public Use
  Company Number: US-ASTRAZENECA-2008UW25629

PATIENT
  Age: 70 Year
  Sex: Female

DRUGS (2)
  1. SEROQUEL [Suspect]
     Indication: DEPRESSION
     Dosage: 400MG TO 600MG
     Route: 048
     Dates: start: 20010101, end: 20070901
  2. SEROQUEL [Suspect]
     Indication: SLEEP DISORDER
     Dosage: 400MG TO 600MG
     Route: 048
     Dates: start: 20010101, end: 20070901

REACTIONS (5)
  - ACUTE RESPIRATORY FAILURE [None]
  - HYPERTENSION [None]
  - DIABETES MELLITUS [None]
  - SUBDURAL HAEMATOMA [None]
  - INJURY [None]
